FAERS Safety Report 7982042 (Version 2)
Quarter: 2018Q4

REPORT INFORMATION
  Report Type: Report from Study
  Country: JP (occurrence: JP)
  Receive Date: 20110609
  Receipt Date: 20181031
  Transmission Date: 20190205
  Serious: Yes (Death, Disabling)
  Sender: FDA-Public Use
  Company Number: PHHY2008JP10379

PATIENT
  Age: 77 Year
  Sex: Female

DRUGS (6)
  1. MUCOSOLVAN [Concomitant]
     Active Substance: AMBROXOL HYDROCHLORIDE
     Dosage: 15 ML, UNK
     Route: 065
     Dates: start: 20071125, end: 20080304
  2. FARESTON [Concomitant]
     Active Substance: TOREMIFENE CITRATE
     Dosage: UNK
     Route: 048
     Dates: start: 20070416
  3. PURSENNID [Concomitant]
     Active Substance: SENNOSIDES A AND B
     Dosage: 24 MG, UNK
     Route: 065
     Dates: start: 20061223, end: 20080304
  4. LASIX [Concomitant]
     Active Substance: FUROSEMIDE
     Dosage: 40 MG, UNK
     Route: 048
     Dates: start: 20080303, end: 20080304
  5. ALDACTONE [Concomitant]
     Active Substance: SPIRONOLACTONE
     Dosage: 25 MG, UNK
     Route: 048
     Dates: start: 20080303, end: 20080304
  6. FEMARA [Suspect]
     Active Substance: LETROZOLE
     Indication: BREAST CANCER
     Dosage: 2.5 MG, QD
     Route: 048
     Dates: start: 20070417

REACTIONS (2)
  - Pneumonia aspiration [Fatal]
  - Oesophageal stenosis [Fatal]

NARRATIVE: CASE EVENT DATE: 20070504
